FAERS Safety Report 6854961-1 (Version None)
Quarter: 2010Q3

REPORT INFORMATION
  Report Type: 
  Country: None (occurrence: None)
  Receive Date: 20100717
  Receipt Date: 20080308
  Transmission Date: 20110219
  Serious: No
  Sender: FDA-Public Use
  Company Number: US-PFIZER INC-2008001763

PATIENT
  Sex: Female
  Weight: 72.7 kg

DRUGS (2)
  1. CHANTIX [Suspect]
     Indication: SMOKING CESSATION THERAPY
     Route: 048
     Dates: start: 20071111, end: 20071211
  2. CITALOPRAM HYDROBROMIDE [Concomitant]
     Indication: SERUM SEROTONIN DECREASED

REACTIONS (4)
  - DEPRESSED MOOD [None]
  - DIZZINESS [None]
  - LETHARGY [None]
  - NAUSEA [None]
